FAERS Safety Report 5528233-1 (Version None)
Quarter: 2007Q4

REPORT INFORMATION
  Report Type: 
  Country: None (occurrence: None)
  Receive Date: 20071128
  Receipt Date: 20071116
  Transmission Date: 20080405
  Serious: Yes (Other)
  Sender: FDA-Public Use
  Company Number: GB-PFIZER INC-2007074064

PATIENT
  Age: 60 Year
  Sex: Female
  Weight: 73 kg

DRUGS (7)
  1. CHAMPIX [Suspect]
     Route: 048
     Dates: start: 20070430, end: 20070508
  2. BENDROFLUMETHIAZIDE [Concomitant]
     Route: 048
  3. ESOMEPRAZOLE [Concomitant]
     Route: 048
  4. PARACETAMOL [Concomitant]
     Route: 048
  5. PAROXETINE [Concomitant]
     Route: 048
  6. ALBUTEROL [Concomitant]
     Route: 055
  7. SERETIDE [Concomitant]
     Route: 055

REACTIONS (3)
  - COLD SWEAT [None]
  - NAUSEA [None]
  - PANIC ATTACK [None]
